FAERS Safety Report 20410264 (Version 1)
Quarter: 2022Q1

REPORT INFORMATION
  Report Type: Spontaneous
  Country: US (occurrence: None)
  Receive Date: 20220131
  Receipt Date: 20220131
  Transmission Date: 20220423
  Serious: No
  Sender: FDA-Public Use
  Company Number: None

PATIENT
  Age: 75 Year
  Sex: Male
  Weight: 86 kg

DRUGS (1)
  1. OBINUTUZUMAB [Suspect]
     Active Substance: OBINUTUZUMAB
     Indication: Chronic lymphocytic leukaemia stage 4
     Dosage: FREQUENCY : ONCE;?
     Route: 042
     Dates: start: 20220126, end: 20220126

REACTIONS (5)
  - Back pain [None]
  - Chest pain [None]
  - Infusion related reaction [None]
  - Atrial fibrillation [None]
  - Flushing [None]

NARRATIVE: CASE EVENT DATE: 20220126
